FAERS Safety Report 17323788 (Version 1)
Quarter: 2020Q1

REPORT INFORMATION
  Report Type: Spontaneous
  Country: JP (occurrence: JP)
  Receive Date: 20200127
  Receipt Date: 20200127
  Transmission Date: 20200409
  Serious: Yes (Hospitalization)
  Sender: FDA-Public Use
  Company Number: JP-TEVA-2020-JP-1175105

PATIENT
  Age: 34 Year
  Sex: Male

DRUGS (4)
  1. INTRAVENOUS IMMUNOGLOBULIN [Concomitant]
     Active Substance: HUMAN IMMUNOGLOBULIN G
     Indication: MYASTHENIA GRAVIS CRISIS
     Dosage: 35 GRAM DAILY; DAYS 3-7
     Route: 042
  2. PREDNISOLONE. [Suspect]
     Active Substance: PREDNISOLONE
     Indication: MYASTHENIA GRAVIS
     Dosage: 20 MILLIGRAM DAILY;
     Route: 048
  3. PREDNISOLONE. [Suspect]
     Active Substance: PREDNISOLONE
     Indication: MYASTHENIA GRAVIS
     Route: 048
  4. TACROLIMUS-HYDRATE [Concomitant]
     Indication: MYASTHENIA GRAVIS CRISIS
     Dosage: 4 MILLIGRAM DAILY; DAY 6
     Route: 065

REACTIONS (2)
  - Steroid diabetes [Unknown]
  - Myasthenia gravis crisis [Recovered/Resolved]
